FAERS Safety Report 14811543 (Version 2)
Quarter: 2018Q3

REPORT INFORMATION
  Report Type: Report from Study
  Country: US (occurrence: US)
  Receive Date: 20180425
  Receipt Date: 20180720
  Transmission Date: 20181010
  Serious: No
  Sender: FDA-Public Use
  Company Number: US-AMGEN-USASL2018044699

PATIENT
  Sex: Male

DRUGS (1)
  1. REPATHA [Suspect]
     Active Substance: EVOLOCUMAB
     Indication: HYPERLIPIDAEMIA
     Dosage: 120 MG, Q2WK
     Route: 065

REACTIONS (3)
  - Arthralgia [Recovered/Resolved]
  - Off label use [Unknown]
  - Back pain [Recovered/Resolved]
